FAERS Safety Report 5973209-3 (Version None)
Quarter: 2008Q4

REPORT INFORMATION
  Report Type: 
  Country: None (occurrence: None)
  Receive Date: 20081201
  Receipt Date: 20081117
  Transmission Date: 20090506
  Serious: Yes (Hospitalization, Other)
  Sender: FDA-Public Use
  Company Number: SE-ELI_LILLY_AND_COMPANY-SE200811003587

PATIENT
  Sex: Female

DRUGS (4)
  1. FORTEO [Suspect]
     Indication: OSTEOPOROSIS
     Dosage: 20 UG, DAILY (1/D)
     Route: 065
     Dates: start: 20080420, end: 20080901
  2. KALCIPOS-D [Concomitant]
     Indication: OSTEOPOROSIS
     Dosage: 1 D/F, 2/D
     Route: 065
  3. VITAMIN B-12 [Concomitant]
     Indication: COELIAC DISEASE
     Dosage: 1 D/F, DAILY (1/D)
     Route: 065
  4. FOLACIN [Concomitant]
     Indication: COELIAC DISEASE
     Dosage: 1 D/F, DAILY (1/D)
     Route: 065

REACTIONS (6)
  - CHEST DISCOMFORT [None]
  - COELIAC DISEASE [None]
  - DIARRHOEA [None]
  - GASTRITIS [None]
  - HEART SOUNDS ABNORMAL [None]
  - VOMITING [None]
